FAERS Safety Report 23084229 (Version 2)
Quarter: 2023Q4

REPORT INFORMATION
  Report Type: Spontaneous
  Country: US (occurrence: US)
  Receive Date: 20231019
  Receipt Date: 20231206
  Transmission Date: 20240110
  Serious: Yes (Other)
  Sender: FDA-Public Use
  Company Number: US-PFIZER INC-202300333212

PATIENT
  Age: 83 Year
  Sex: Female
  Weight: 65.77 kg

DRUGS (1)
  1. PREMARIN [Suspect]
     Active Substance: ESTROGENS, CONJUGATED
     Dosage: 0.5 G, 2X/WEEK (MONDAY AND THURSDAY)
     Route: 067
     Dates: start: 202309, end: 20231005

REACTIONS (4)
  - Pelvic haemorrhage [Unknown]
  - Headache [Recovering/Resolving]
  - Pelvic pain [Recovered/Resolved]
  - Breast pain [Not Recovered/Not Resolved]

NARRATIVE: CASE EVENT DATE: 20230901
